FAERS Safety Report 8302698-4 (Version None)
Quarter: 2012Q2

REPORT INFORMATION
  Report Type: 
  Country: None (occurrence: None)
  Receive Date: 20120420
  Receipt Date: 20120403
  Transmission Date: 20120825
  Serious: Yes (Other)
  Sender: FDA-Public Use
  Company Number: PT-BAXTER-2012BAX002515

PATIENT
  Age: 83 Year
  Sex: Male

DRUGS (6)
  1. NUTRINEAL [Suspect]
     Dates: start: 20080930, end: 20101007
  2. EXTRANEAL [Suspect]
     Route: 033
     Dates: start: 20080930, end: 20110131
  3. NUTRINEAL [Suspect]
     Route: 033
     Dates: end: 20101007
  4. PHYSIONEAL 40 GLUCOSE 2,27% P/V / 22,7 MG/ML [Suspect]
     Route: 033
     Dates: start: 20080930, end: 20110131
  5. EPOGEN [Concomitant]
     Route: 065
  6. IRON [Concomitant]
     Route: 042

REACTIONS (1)
  - NONINFECTIOUS PERITONITIS [None]
